FAERS Safety Report 6801748-1 (Version None)
Quarter: 2010Q2

REPORT INFORMATION
  Report Type: 
  Country: None (occurrence: None)
  Receive Date: 20100629
  Receipt Date: 20100618
  Transmission Date: 20101027
  Serious: Yes (Death)
  Sender: FDA-Public Use
  Company Number: US-GENZYME-MOZO-1000340

PATIENT
  Age: 63 Year
  Sex: Female
  Weight: 52 kg

DRUGS (15)
  1. MOZOBIL [Suspect]
     Indication: HAEMATOPOIETIC STEM CELL MOBILISATION
     Dosage: 15763 MCG, QD
     Route: 042
     Dates: start: 20100519, end: 20100524
  2. MOZOBIL [Suspect]
     Indication: ACUTE MYELOID LEUKAEMIA
  3. MITOXANTRONE [Suspect]
     Indication: ACUTE MYELOID LEUKAEMIA
     Dosage: UNK
     Dates: start: 20100520
  4. CYTARABINE [Suspect]
     Indication: ACUTE MYELOID LEUKAEMIA
     Dosage: UNK
     Dates: start: 20100520
  5. ETOPOSIDE [Suspect]
     Indication: ACUTE MYELOID LEUKAEMIA
     Dosage: UNK
     Dates: start: 20100520
  6. VALACYCLOVIR [Concomitant]
     Indication: DRUG USE FOR UNKNOWN INDICATION
  7. ACETAMINOPHEN [Concomitant]
  8. LINEZOLID [Concomitant]
     Indication: DRUG USE FOR UNKNOWN INDICATION
  9. ANIDULAFUNGIN [Concomitant]
     Indication: DRUG USE FOR UNKNOWN INDICATION
  10. ATENOLOL [Concomitant]
     Indication: DRUG USE FOR UNKNOWN INDICATION
  11. LORAZEPAM [Concomitant]
     Indication: DRUG USE FOR UNKNOWN INDICATION
  12. CEFEPIME [Concomitant]
     Indication: DRUG USE FOR UNKNOWN INDICATION
  13. CEFTRIAXONE [Concomitant]
     Indication: DRUG USE FOR UNKNOWN INDICATION
  14. DAPSON [Concomitant]
     Indication: DRUG USE FOR UNKNOWN INDICATION
  15. DIPHENHYDRAMINE [Concomitant]
     Indication: DRUG USE FOR UNKNOWN INDICATION

REACTIONS (2)
  - ACUTE MYELOID LEUKAEMIA [None]
  - FUNGAL SEPSIS [None]
